FAERS Safety Report 12349497 (Version 2)
Quarter: 2017Q2

REPORT INFORMATION
  Report Type: Spontaneous
  Country: US (occurrence: US)
  Receive Date: 20160510
  Receipt Date: 20170427
  Transmission Date: 20170830
  Serious: Yes (Hospitalization)
  Sender: FDA-Public Use
  Company Number: PHHY2016US060860

PATIENT
  Age: 24 Year
  Sex: Male

DRUGS (2)
  1. CIMETIDINE [Concomitant]
     Active Substance: CIMETIDINE
     Indication: PRODUCT USED FOR UNKNOWN INDICATION
     Route: 065
  2. LOPERAMIDE [Suspect]
     Active Substance: LOPERAMIDE
     Indication: DRUG WITHDRAWAL MAINTENANCE THERAPY
     Dosage: 400 MG
     Route: 065
     Dates: start: 20150917

REACTIONS (3)
  - Intentional product misuse [Recovered/Resolved]
  - Electrocardiogram QT prolonged [Recovered/Resolved]
  - Ventricular tachycardia [Recovered/Resolved]
